FAERS Safety Report 6244496-1 (Version None)
Quarter: 2009Q2

REPORT INFORMATION
  Report Type: 
  Country: None (occurrence: None)
  Receive Date: 20090625
  Receipt Date: 20090617
  Transmission Date: 20091009
  Serious: Yes (Hospitalization)
  Sender: FDA-Public Use
  Company Number: GB-BAYER-200912364BNE

PATIENT
  Age: 64 Year
  Weight: 66 kg

DRUGS (6)
  1. ASPIRIN [Suspect]
     Indication: DRUG USE FOR UNKNOWN INDICATION
     Dates: start: 20081008, end: 20090331
  2. DALTEPARIN SODIUM [Interacting]
     Indication: DRUG USE FOR UNKNOWN INDICATION
     Dates: start: 20090318, end: 20090331
  3. THYMOGLOBULIN [Interacting]
     Indication: DRUG USE FOR UNKNOWN INDICATION
     Route: 042
     Dates: start: 20090318, end: 20090325
  4. ATENOLOL [Concomitant]
     Indication: DRUG USE FOR UNKNOWN INDICATION
     Dates: start: 20070912
  5. METHYLPREDNISOLONE [Concomitant]
     Indication: DRUG USE FOR UNKNOWN INDICATION
     Dates: start: 20090318, end: 20090318
  6. SIMULECT [Concomitant]
     Indication: DRUG USE FOR UNKNOWN INDICATION
     Dates: start: 20090318, end: 20090323

REACTIONS (2)
  - COAGULOPATHY [None]
  - OPERATIVE HAEMORRHAGE [None]
